FAERS Safety Report 14913786 (Version 1)
Quarter: 2018Q2

REPORT INFORMATION
  Report Type: Spontaneous
  Country: FR (occurrence: FR)
  Receive Date: 20180518
  Receipt Date: 20180518
  Transmission Date: 20180711
  Serious: Yes (Other)
  Sender: FDA-Public Use
  Company Number: FR-MERCK KGAA-2048064

PATIENT
  Age: 87 Year
  Sex: Male
  Weight: 70 kg

DRUGS (1)
  1. NOVOTHYROX [Suspect]
     Active Substance: LEVOTHYROXINE SODIUM
     Indication: THYROID DISORDER
     Dates: start: 201705, end: 20170905

REACTIONS (32)
  - Affective disorder [Recovering/Resolving]
  - Fatigue [Not Recovered/Not Resolved]
  - Balance disorder [None]
  - Mobility decreased [None]
  - Suicidal ideation [Recovering/Resolving]
  - Asthenia [None]
  - Loss of personal independence in daily activities [None]
  - Decreased activity [None]
  - Feeling abnormal [None]
  - Allergic reaction to excipient [None]
  - Negative thoughts [Recovering/Resolving]
  - Reaction to excipient [None]
  - Muscular weakness [Not Recovered/Not Resolved]
  - Dizziness [Not Recovered/Not Resolved]
  - General physical health deterioration [None]
  - C-reactive protein increased [None]
  - Insomnia [Recovering/Resolving]
  - Fear of falling [None]
  - Disturbance in attention [None]
  - Amnesia [Not Recovered/Not Resolved]
  - Headache [Not Recovered/Not Resolved]
  - Anxiety [Recovering/Resolving]
  - Depression [Recovering/Resolving]
  - Palpitations [Not Recovered/Not Resolved]
  - Social avoidant behaviour [Recovering/Resolving]
  - Psychiatric symptom [Recovering/Resolving]
  - Gait disturbance [None]
  - Frustration tolerance decreased [Recovering/Resolving]
  - Depersonalisation/derealisation disorder [Recovering/Resolving]
  - Malaise [None]
  - Hypokinesia [None]
  - Dyspnoea [Not Recovered/Not Resolved]

NARRATIVE: CASE EVENT DATE: 201705
